FAERS Safety Report 5775212-5 (Version None)
Quarter: 2008Q2

REPORT INFORMATION
  Report Type: 
  Country: None (occurrence: None)
  Receive Date: 20080617
  Receipt Date: 20080613
  Transmission Date: 20081010
  Serious: Yes (Hospitalization)
  Sender: FDA-Public Use
  Company Number: B0519931A

PATIENT
  Age: 79 Year
  Sex: Female

DRUGS (7)
  1. VALTREX [Suspect]
     Indication: HERPES ZOSTER
     Route: 048
     Dates: start: 20080428, end: 20080501
  2. VOLTAREN [Concomitant]
     Route: 062
  3. MYSLEE [Concomitant]
     Dosage: 5MG PER DAY
     Route: 048
  4. MUCOSTA [Concomitant]
     Dosage: 300MG PER DAY
     Route: 048
  5. RIZE [Concomitant]
     Dosage: 10MG PER DAY
     Route: 048
  6. SOLETON [Concomitant]
     Route: 048
  7. FAMOTIDINE [Concomitant]
     Dosage: 20MG PER DAY
     Route: 048

REACTIONS (5)
  - ANOREXIA [None]
  - DEHYDRATION [None]
  - ENCEPHALOPATHY [None]
  - RENAL FAILURE ACUTE [None]
  - RESTLESSNESS [None]
